FAERS Safety Report 7818881-8 (Version None)
Quarter: 2011Q4

REPORT INFORMATION
  Report Type: 
  Country: None (occurrence: None)
  Receive Date: 20111017
  Receipt Date: 20111017
  Transmission Date: 20120403
  Serious: Yes (Hospitalization)
  Sender: FDA-Public Use
  Company Number: None

PATIENT
  Age: 91 Year
  Sex: Male

DRUGS (2)
  1. AMPICILLIN AND SULBACTAM [Suspect]
     Indication: BALANOPOSTHITIS
     Dosage: 3 GM BID IV
     Route: 042
     Dates: start: 20110921, end: 20110923
  2. AMPICILLIN AND SULBACTAM [Suspect]
     Indication: CELLULITIS
     Dosage: 3 GM BID IV
     Route: 042
     Dates: start: 20110921, end: 20110923

REACTIONS (1)
  - RASH [None]
